FAERS Safety Report 18680490 (Version 2)
Quarter: 2020Q4

REPORT INFORMATION
  Report Type: Spontaneous
  Country: KR (occurrence: KR)
  Receive Date: 20201229
  Receipt Date: 20201229
  Transmission Date: 20210114
  Serious: Yes (Death, Other)
  Sender: FDA-Public Use
  Company Number: KR-GILEAD-2020-0510806

PATIENT
  Sex: Female

DRUGS (12)
  1. SIMVASTAR [Concomitant]
  2. MAROGEL [Concomitant]
  3. QUETIAPINE. [Concomitant]
     Active Substance: QUETIAPINE
  4. ZOLPID [Concomitant]
  5. BAYER ASPIRIN [Concomitant]
     Active Substance: ASPIRIN
  6. VEKLURY [Suspect]
     Active Substance: REMDESIVIR
     Indication: COVID-19
     Dosage: UNK
     Route: 042
     Dates: start: 20201224, end: 20201225
  7. PARIET [Concomitant]
     Active Substance: RABEPRAZOLE SODIUM
  8. PLAVITOR [Concomitant]
  9. EBIXA [Concomitant]
     Active Substance: MEMANTINE HYDROCHLORIDE
  10. ARICEPT [Concomitant]
     Active Substance: DONEPEZIL HYDROCHLORIDE
  11. MOVELOXIN [Concomitant]
     Indication: BACTERIAL INFECTION
  12. SEROQUEL [Concomitant]
     Active Substance: QUETIAPINE FUMARATE

REACTIONS (1)
  - COVID-19 pneumonia [Fatal]

NARRATIVE: CASE EVENT DATE: 20201225
